FAERS Safety Report 16563257 (Version 3)
Quarter: 2019Q3

REPORT INFORMATION
  Report Type: Report from Study
  Country: GB (occurrence: GB)
  Receive Date: 20190711
  Receipt Date: 20190828
  Transmission Date: 20191004
  Serious: Yes (Hospitalization)
  Sender: FDA-Public Use
  Company Number: PHHY2019GB157229

PATIENT
  Sex: Male

DRUGS (2)
  1. INFLIXIMAB [Concomitant]
     Active Substance: INFLIXIMAB
     Indication: PRODUCT USED FOR UNKNOWN INDICATION
     Route: 041
  2. HYRIMOZ [Suspect]
     Active Substance: ADALIMUMAB-ADAZ
     Indication: COLITIS ULCERATIVE
     Dosage: 40 MG, Q2W (PRE-FILLED PEN)
     Route: 065
     Dates: start: 20190524

REACTIONS (4)
  - Therapeutic response decreased [Unknown]
  - Colitis [Unknown]
  - Ill-defined disorder [Unknown]
  - Drug ineffective [Unknown]
